FAERS Safety Report 15144981 (Version 1)
Quarter: 2018Q4

REPORT INFORMATION
  Report Type: Spontaneous
  Country: US (occurrence: US)
  Receive Date: 20180713
  Receipt Date: 20180713
  Transmission Date: 20190204
  Serious: No
  Sender: FDA-Public Use
  Company Number: US-ELI_LILLY_AND_COMPANY-US201807006480

PATIENT
  Sex: Male

DRUGS (1)
  1. RAMUCIRUMAB 500MG [Suspect]
     Active Substance: RAMUCIRUMAB
     Indication: GASTRIC CANCER
     Dosage: 500 MG, 2/M
     Route: 042
     Dates: start: 20180529

REACTIONS (1)
  - Fatigue [Unknown]
